FAERS Safety Report 20533695 (Version 2)
Quarter: 2022Q2

REPORT INFORMATION
  Report Type: Spontaneous
  Country: CA (occurrence: CA)
  Receive Date: 20220301
  Receipt Date: 20220406
  Transmission Date: 20220721
  Serious: Yes (Death)
  Sender: FDA-Public Use
  Company Number: CA-PFIZER INC-202200327098

PATIENT
  Age: 74 Year
  Sex: Male

DRUGS (1)
  1. RUXIENCE [Suspect]
     Active Substance: RITUXIMAB-PVVR
     Indication: Rheumatoid arthritis
     Dosage: 1000 MG DAY 1 AND 15
     Route: 042
     Dates: start: 20210819, end: 20210902

REACTIONS (1)
  - Death [Fatal]

NARRATIVE: CASE EVENT DATE: 20211128
